FAERS Safety Report 7534631-7 (Version None)
Quarter: 2011Q2

REPORT INFORMATION
  Report Type: 
  Country: None (occurrence: None)
  Receive Date: 20110609
  Receipt Date: 20110211
  Transmission Date: 20111010
  Serious: Yes (Hospitalization, Other)
  Sender: FDA-Public Use
  Company Number: PHHY2009DE11344

PATIENT
  Sex: Female
  Weight: 56 kg

DRUGS (13)
  1. INSULIN [Concomitant]
     Dates: start: 19990101
  2. POLYETHYLENE GLYCOL [Concomitant]
     Dates: start: 20081101
  3. IBANDRONATE SODIUM [Concomitant]
     Dates: start: 20081126
  4. BISOPROLOL FUMARATE [Concomitant]
     Dosage: 5 OT, UNK
     Dates: start: 19910101
  5. PALLADONE [Concomitant]
     Dates: start: 20081101
  6. LETROZOLE [Suspect]
     Indication: ADJUVANT THERAPY
     Dosage: 2.5 MG, QD
     Route: 048
     Dates: start: 20081202, end: 20090127
  7. ASPIRIN [Concomitant]
     Dosage: 100 OT, UNK
     Dates: start: 19910101
  8. ESIDRIX [Concomitant]
     Dosage: 25 OT, UNK
     Dates: start: 19910101
  9. HYDROCHLOROTHIAZIDE [Concomitant]
     Dates: start: 19910101
  10. AMLODIPINE [Concomitant]
     Dates: start: 19910101
  11. HUMALOG [Concomitant]
     Dates: start: 19990101
  12. ARELIX [Concomitant]
     Dosage: 5 MG, UNK
     Dates: start: 19910101
  13. SIMVASTATIN [Concomitant]
     Dosage: 20 OT, UNK
     Dates: start: 20080601

REACTIONS (8)
  - PNEUMONIA [None]
  - NEUTROPENIA [None]
  - PYREXIA [None]
  - BONE PAIN [None]
  - ANAEMIA [None]
  - GENERAL PHYSICAL HEALTH DETERIORATION [None]
  - LEUKOPENIA [None]
  - BONE MARROW TUMOUR CELL INFILTRATION [None]
